FAERS Safety Report 8707922 (Version 2)
Quarter: 2014Q1

REPORT INFORMATION
  Report Type: Spontaneous
  Country: US (occurrence: US)
  Receive Date: 20120806
  Receipt Date: 20140319
  Transmission Date: 20141002
  Serious: No
  Sender: FDA-Public Use
  Company Number: US-PFIZER INC-2012186072

PATIENT
  Age: 57 Year
  Sex: Female

DRUGS (14)
  1. CLEOCIN [Suspect]
     Dosage: UNK
  2. HEPARIN [Suspect]
     Dosage: UNK
  3. OXYMETAZOLINE [Suspect]
     Dosage: UNK
  4. DURACEF [Suspect]
     Dosage: UNK
  5. AMBIEN [Suspect]
     Dosage: UNK
  6. CIPRO [Suspect]
     Dosage: UNK
  7. CECLOR [Suspect]
     Dosage: UNK
  8. COMPAZINE [Suspect]
     Dosage: UNK
  9. GADOLINIUM [Suspect]
     Dosage: UNK
  10. INDOCIN [Suspect]
     Dosage: UNK
  11. IODINE [Suspect]
     Dosage: UNK
  12. MONISTAT [Suspect]
     Dosage: UNK
  13. MYCELEX [Suspect]
     Dosage: UNK
  14. NIZORAL [Suspect]
     Dosage: UNK

REACTIONS (1)
  - Drug hypersensitivity [Unknown]
